FAERS Safety Report 5349545-0 (Version None)
Quarter: 2007Q2

REPORT INFORMATION
  Report Type: 
  Country: None (occurrence: None)
  Receive Date: 20070510
  Receipt Date: 20070205
  Transmission Date: 20071010
  Serious: Yes (Other)
  Sender: FDA-Public Use
  Company Number: WAES 0702USA00752

PATIENT
  Age: 78 Year
  Sex: Female

DRUGS (5)
  1. ZOLINZA [Suspect]
     Indication: T-CELL LYMPHOMA
     Dosage: SEE IMAGE
     Route: 048
     Dates: start: 20061130, end: 20070119
  2. ZOLINZA [Suspect]
     Indication: T-CELL LYMPHOMA
     Dosage: SEE IMAGE
     Route: 048
     Dates: start: 20070201
  3. KYTRIL [Suspect]
  4. COMPAZINE [Suspect]
  5. LEVOTHYROXINE SODIUM [Concomitant]

REACTIONS (7)
  - DRUG INEFFECTIVE [None]
  - DYSGEUSIA [None]
  - NAUSEA [None]
  - PLATELET COUNT DECREASED [None]
  - PRURITUS [None]
  - RED BLOOD CELL COUNT INCREASED [None]
  - WEIGHT DECREASED [None]
